FAERS Safety Report 23589757 (Version 2)
Quarter: 2024Q1

REPORT INFORMATION
  Report Type: Spontaneous
  Country: US (occurrence: US)
  Receive Date: 20240304
  Receipt Date: 20240308
  Transmission Date: 20240409
  Serious: Yes (Other)
  Sender: FDA-Public Use
  Company Number: US-BIOVITRUM-2024-US-003272

PATIENT
  Age: 32 Year
  Sex: Male

DRUGS (3)
  1. ANAKINRA [Suspect]
     Active Substance: ANAKINRA
     Indication: Still^s disease
     Dosage: EVERY 8 HOURS.
     Route: 058
  2. ANAKINRA [Suspect]
     Active Substance: ANAKINRA
     Dosage: EVERY 8 HOURS.
     Route: 058
  3. ANAKINRA [Suspect]
     Active Substance: ANAKINRA
     Dosage: DECREASED DOSING OF ANAKINRA TO 100 MG DAILY
     Route: 058

REACTIONS (3)
  - Haemophagocytic lymphohistiocytosis [Unknown]
  - Off label use [Unknown]
  - Product dose omission issue [Unknown]
